FAERS Safety Report 5271710-1 (Version None)
Quarter: 2007Q1

REPORT INFORMATION
  Report Type: 
  Country: None (occurrence: None)
  Receive Date: 20061214
  Receipt Date: 20061012
  Transmission Date: 20070707
  Serious: Yes (Other)
  Sender: FDA-Public Use
  Company Number: 2006131762

PATIENT
  Age: 69 Year
  Sex: Male

DRUGS (1)
  1. BEXTRA [Suspect]

REACTIONS (1)
  - MYOCARDIAL INFARCTION [None]
